FAERS Safety Report 8975523 (Version 2)
Quarter: 2014Q2

REPORT INFORMATION
  Report Type: Spontaneous
  Country: US (occurrence: US)
  Receive Date: 20121219
  Receipt Date: 20140519
  Transmission Date: 20141212
  Serious: No
  Sender: FDA-Public Use
  Company Number: US-AMGEN-USASP2012071775

PATIENT
  Age: 60 Year
  Sex: Female

DRUGS (2)
  1. PROLIA [Suspect]
     Indication: OSTEOPOROSIS POSTMENOPAUSAL
     Dosage: UNK
     Route: 065
     Dates: start: 20120806
  2. CALCIUM/VITAMIN D                  /01204201/ [Concomitant]
     Dosage: 1200 MG, Q3H

REACTIONS (8)
  - Pain in jaw [Recovered/Resolved]
  - Local swelling [Recovered/Resolved]
  - Gait disturbance [Unknown]
  - Discomfort [Unknown]
  - Muscle strain [Not Recovered/Not Resolved]
  - Back pain [Recovered/Resolved]
  - Arthralgia [Unknown]
  - Bone pain [Unknown]
